FAERS Safety Report 6017681-1 (Version None)
Quarter: 2008Q4

REPORT INFORMATION
  Report Type: 
  Country: None (occurrence: None)
  Receive Date: 20081223
  Receipt Date: 20081218
  Transmission Date: 20090506
  Serious: Yes (Hospitalization)
  Sender: FDA-Public Use
  Company Number: GB-ROCHE-604113

PATIENT
  Sex: Female
  Weight: 120 kg

DRUGS (2)
  1. ORLISTAT [Suspect]
     Indication: OBESITY
     Route: 048
     Dates: start: 20080715
  2. UNSPECIFIED DRUGS [Concomitant]

REACTIONS (1)
  - CYST [None]
